FAERS Safety Report 20848979 (Version 2)
Quarter: 2022Q3

REPORT INFORMATION
  Report Type: Other
  Country: US (occurrence: None)
  Receive Date: 20220519
  Receipt Date: 20220806
  Transmission Date: 20221027
  Serious: Yes (Other)
  Sender: FDA-Public Use
  Company Number: US-ROCHE-3098250

PATIENT
  Sex: Female

DRUGS (1)
  1. ERIVEDGE [Suspect]
     Active Substance: VISMODEGIB
     Indication: Basal cell carcinoma
     Dosage: TAKE 1 CAPSULE BY MOUTH EVERY DAY
     Route: 048

REACTIONS (1)
  - Recurrent cancer [Unknown]
